FAERS Safety Report 21390158 (Version 1)
Quarter: 2022Q3

REPORT INFORMATION
  Report Type: Spontaneous
  Country: US (occurrence: US)
  Receive Date: 20220929
  Receipt Date: 20220929
  Transmission Date: 20221026
  Serious: No
  Sender: FDA-Public Use
  Company Number: US-AVET LIFESCIENCES LTD-2022-AVET-000169

PATIENT

DRUGS (2)
  1. LEFLUNOMIDE [Suspect]
     Active Substance: LEFLUNOMIDE
     Indication: Giant cell arteritis
     Dosage: 1 TABLET/DAY
     Dates: start: 2019
  2. PREDNISONE [Suspect]
     Active Substance: PREDNISONE
     Indication: Product used for unknown indication

REACTIONS (2)
  - Muscular weakness [Recovered/Resolved]
  - Off label use [Unknown]

NARRATIVE: CASE EVENT DATE: 20190101
